FAERS Safety Report 24972104 (Version 8)
Quarter: 2025Q2

REPORT INFORMATION
  Report Type: Spontaneous
  Country: UY (occurrence: UY)
  Receive Date: 20250214
  Receipt Date: 20250424
  Transmission Date: 20250717
  Serious: No
  Sender: PFIZER
  Company Number: UY-PFIZER INC-202500028053

PATIENT

DRUGS (3)
  1. GENOTROPIN [Suspect]
     Active Substance: SOMATROPIN
     Indication: Short stature
     Dosage: 2.5 MG, DAILY
     Dates: start: 20240922
  2. GENOTROPIN [Suspect]
     Active Substance: SOMATROPIN
  3. GENOTROPIN [Suspect]
     Active Substance: SOMATROPIN

REACTIONS (1)
  - Device use issue [Unknown]
